FAERS Safety Report 17099585 (Version 3)
Quarter: 2020Q1

REPORT INFORMATION
  Report Type: Spontaneous
  Country: JP (occurrence: JP)
  Receive Date: 20191202
  Receipt Date: 20200219
  Transmission Date: 20200409
  Serious: Yes (Hospitalization)
  Sender: FDA-Public Use
  Company Number: JP-TAIHO ONCOLOGY  INC-JPTT190312

PATIENT
  Age: 66 Year
  Sex: Male
  Weight: 57 kg

DRUGS (15)
  1. FUROSEMIDE. [Concomitant]
     Active Substance: FUROSEMIDE
     Route: 048
     Dates: start: 20190221
  2. SAMSCA [Concomitant]
     Active Substance: TOLVAPTAN
     Route: 048
     Dates: start: 20190820
  3. SODIUM FERROUS CITRATE [Concomitant]
     Active Substance: SODIUM FERROUS CITRATE
     Route: 048
  4. SPIRONOLACTONE. [Concomitant]
     Active Substance: SPIRONOLACTONE
     Route: 048
     Dates: start: 20180221
  5. SULBACILLIN [Concomitant]
     Active Substance: AMPICILLIN SODIUM\SULBACTAM SODIUM
     Route: 041
     Dates: start: 20191023, end: 20191105
  6. LINZESS [Concomitant]
     Active Substance: LINACLOTIDE
     Route: 048
     Dates: start: 20190514
  7. CALONAL [Concomitant]
     Active Substance: ACETAMINOPHEN
     Route: 048
     Dates: start: 20180329
  8. CANDESARTAN CILEXETIL. [Concomitant]
     Active Substance: CANDESARTAN CILEXETIL
     Route: 048
     Dates: start: 20180915
  9. LYRICA [Concomitant]
     Active Substance: PREGABALIN
     Route: 048
     Dates: start: 20190423
  10. AMINOLEBAN EN [Concomitant]
     Active Substance: UNSPECIFIED INGREDIENT
     Route: 048
     Dates: start: 20190617
  11. DAIKENCHUTO [Concomitant]
     Active Substance: HERBALS
     Route: 048
     Dates: start: 20190910
  12. LONSURF [Suspect]
     Active Substance: TIPIRACIL HYDROCHLORIDE\TRIFLURIDINE
     Indication: METASTATIC GASTRIC CANCER
     Route: 048
     Dates: start: 20191105, end: 20191109
  13. NEXIUM [Concomitant]
     Active Substance: ESOMEPRAZOLE MAGNESIUM
     Route: 048
     Dates: start: 20180327
  14. ZINC. [Concomitant]
     Active Substance: ZINC
     Route: 048
     Dates: start: 20190910
  15. MIYA-BM [Concomitant]
     Active Substance: CLOSTRIDIUM BUTYRICUM SPORES STRAIN M-55
     Route: 048
     Dates: start: 20191028

REACTIONS (1)
  - Enterocolitis [Recovering/Resolving]
